FAERS Safety Report 4514499-3 (Version None)
Quarter: 2004Q4

REPORT INFORMATION
  Report Type: 
  Country: None (occurrence: None)
  Receive Date: 20041126
  Receipt Date: 20041116
  Transmission Date: 20050328
  Serious: Yes (Other)
  Sender: FDA-Public Use
  Company Number: 2004094164

PATIENT
  Age: 62 Year
  Sex: Female
  Weight: 53.0709 kg

DRUGS (1)
  1. ROGAINE [Suspect]
     Indication: ALOPECIA
     Dosage: UNSPECIFIED AMOUNT
     Dates: start: 20000101

REACTIONS (1)
  - BREAST CANCER FEMALE [None]
